FAERS Safety Report 17598125 (Version 1)
Quarter: 2020Q1

REPORT INFORMATION
  Report Type: Spontaneous
  Country: JP (occurrence: JP)
  Receive Date: 20200330
  Receipt Date: 20200330
  Transmission Date: 20200409
  Serious: Yes (Other)
  Sender: FDA-Public Use
  Company Number: JP-GALDERMA-JP2020015194

PATIENT
  Age: 75 Year
  Sex: Male

DRUGS (4)
  1. MINOCYCLINE [Concomitant]
     Active Substance: MINOCYCLINE HYDROCHLORIDE
     Indication: RASH PUSTULAR
     Route: 048
  2. CLOBETASOL [Suspect]
     Active Substance: CLOBETASOL
     Indication: RASH PUSTULAR
     Route: 061
  3. ANTIBIOTICS [Concomitant]
     Active Substance: UNSPECIFIED INGREDIENT
     Indication: RASH PUSTULAR
     Route: 061
  4. CETUXIMAB. [Concomitant]
     Active Substance: CETUXIMAB
     Indication: PRODUCT USED FOR UNKNOWN INDICATION
     Route: 065

REACTIONS (4)
  - Staphylococcal infection [Unknown]
  - Condition aggravated [Unknown]
  - Intentional product use issue [Recovered/Resolved]
  - Folliculitis [Unknown]
